FAERS Safety Report 7619861-8 (Version None)
Quarter: 2011Q3

REPORT INFORMATION
  Report Type: 
  Country: None (occurrence: None)
  Receive Date: 20110719
  Receipt Date: 20110711
  Transmission Date: 20111222
  Serious: Yes (Other)
  Sender: FDA-Public Use
  Company Number: ES-ASTELLAS-2011US003486

PATIENT
  Sex: Male
  Weight: 66 kg

DRUGS (12)
  1. ALLOPURINOL [Concomitant]
     Indication: PRODUCT USED FOR UNKNOWN INDICATION
     Dosage: 300 MG, UNKNOWN/D
     Route: 048
     Dates: start: 20110625
  2. FILGRASTIM [Concomitant]
     Indication: PRODUCT USED FOR UNKNOWN INDICATION
     Dosage: 480 UNK, UNKNOWN/D
     Route: 042
     Dates: start: 20110625, end: 20110630
  3. ITRACONAZOLE [Concomitant]
     Indication: PRODUCT USED FOR UNKNOWN INDICATION
     Dosage: UNK
     Route: 065
  4. SEPTRA [Concomitant]
     Indication: PROPHYLAXIS
     Dosage: 800 MG, UNKNOWN/D
     Route: 048
     Dates: start: 20110625
  5. FLUDARABINE PHOSPHATE [Concomitant]
     Indication: PRODUCT USED FOR UNKNOWN INDICATION
     Dosage: 50 MG, UNKNOWN/D
     Route: 042
     Dates: start: 20110625, end: 20110629
  6. AMBISOME [Suspect]
     Indication: PRODUCT USED FOR UNKNOWN INDICATION
     Dosage: UNK
     Route: 065
  7. AC.FOLINICO GI [Concomitant]
     Indication: PROPHYLAXIS
     Dosage: 5 MG, UNKNOWN/D
     Route: 048
     Dates: start: 20110625
  8. CYTARABINE [Concomitant]
     Indication: PRODUCT USED FOR UNKNOWN INDICATION
     Dosage: 3300 MG, UNKNOWN/D
     Route: 042
     Dates: start: 20110626, end: 20110629
  9. IDARUBICIN HCL [Concomitant]
     Indication: PRODUCT USED FOR UNKNOWN INDICATION
     Dosage: 16 MG, UNKNOWN/D
     Route: 042
     Dates: start: 20110626, end: 20110628
  10. VITAMIN B6 [Concomitant]
     Indication: PRODUCT USED FOR UNKNOWN INDICATION
     Dosage: 300 MG, UNKNOWN/D
     Route: 042
     Dates: start: 20110626, end: 20110629
  11. ONDASETRON [Concomitant]
     Indication: PRODUCT USED FOR UNKNOWN INDICATION
     Dosage: 8 MG, UNKNOWN/D
     Route: 042
     Dates: start: 20110626, end: 20110630
  12. OMEPRAZOLE [Concomitant]
     Indication: GASTROOESOPHAGEAL REFLUX PROPHYLAXIS
     Dosage: 20 MG, UNKNOWN/D
     Route: 048
     Dates: start: 20110625

REACTIONS (5)
  - PHARYNGEAL OEDEMA [None]
  - HYPERHIDROSIS [None]
  - LOCALISED OEDEMA [None]
  - PRURITUS [None]
  - FACE OEDEMA [None]
